FAERS Safety Report 4527532-X (Version None)
Quarter: 2004Q4

REPORT INFORMATION
  Report Type: 
  Country: None (occurrence: None)
  Receive Date: 20041123
  Receipt Date: 20040625
  Transmission Date: 20050328
  Serious: Yes (Disabling)
  Sender: FDA-Public Use
  Company Number: 2004043587

PATIENT
  Age: 74 Year
  Sex: Male

DRUGS (8)
  1. LIPITOR [Suspect]
     Indication: BLOOD CHOLESTEROL INCREASED
     Dosage: 20 MG (10 MG, 2 IN 1 D), ORAL
     Route: 048
  2. RABEPRAZOLE SODIUM [Concomitant]
  3. OLMESARTAN MEDOXOMIL (OLMESARTAN MEDOXOMIL) [Concomitant]
  4. AMLODIPINE BESYLATE [Concomitant]
  5. OCUVITE (ASCORBIC ACID, RETINOL, TOCOPHEROL) [Concomitant]
  6. PREDNISONE [Concomitant]
  7. GLUCOSAMINE (GLUCOSAMINE) [Concomitant]
  8. SILDENAFIL CITRATE (SILDENAFIL CITRATE) [Concomitant]

REACTIONS (1)
  - AGEUSIA [None]
